FAERS Safety Report 11171402 (Version 1)
Quarter: 2015Q2

REPORT INFORMATION
  Report Type: Spontaneous
  Country: US (occurrence: None)
  Receive Date: 20150605
  Receipt Date: 20150605
  Transmission Date: 20150821
  Serious: Yes (Hospitalization)
  Sender: FDA-Public Use
  Company Number: None

PATIENT
  Age: 65 Year
  Sex: Female
  Weight: 64 kg

DRUGS (3)
  1. CARBOPLATIN. [Suspect]
     Active Substance: CARBOPLATIN
     Dates: end: 20150514
  2. METFORMIN HYDROCHLORIDE. [Suspect]
     Active Substance: METFORMIN HYDROCHLORIDE
     Dates: end: 20150523
  3. TAXOL [Suspect]
     Active Substance: PACLITAXEL
     Dates: end: 20150514

REACTIONS (2)
  - Bronchopneumonia [None]
  - Sinus tachycardia [None]

NARRATIVE: CASE EVENT DATE: 20150523
